FAERS Safety Report 23403700 (Version 2)
Quarter: 2024Q1

REPORT INFORMATION
  Report Type: Report from Study
  Country: IE (occurrence: IE)
  Receive Date: 20240116
  Receipt Date: 20240206
  Transmission Date: 20240410
  Serious: No
  Sender: FDA-Public Use
  Company Number: IE-AstraZeneca-2024A008278

PATIENT
  Age: 2 Month
  Sex: Male

DRUGS (4)
  1. SYNAGIS [Suspect]
     Active Substance: PALIVIZUMAB
     Indication: Heart disease congenital
     Dosage: EVERY FOUR WEEKS
     Route: 030
     Dates: start: 20231213
  2. SYNAGIS [Suspect]
     Active Substance: PALIVIZUMAB
     Dosage: EVERY 4 WEEKS
     Route: 030
     Dates: start: 20231115
  3. SYNAGIS [Suspect]
     Active Substance: PALIVIZUMAB
     Dosage: EVERY 4 WEEKS
     Route: 030
     Dates: start: 20240110
  4. SYNAGIS [Suspect]
     Active Substance: PALIVIZUMAB
     Route: 030
     Dates: start: 20231017

REACTIONS (1)
  - No adverse event [Unknown]
